FAERS Safety Report 22386254 (Version 1)
Quarter: 2023Q2

REPORT INFORMATION
  Report Type: Spontaneous
  Country: US (occurrence: US)
  Receive Date: 20230530
  Receipt Date: 20230530
  Transmission Date: 20230722
  Serious: Yes (Other)
  Sender: FDA-Public Use
  Company Number: US-002147023-NVSC2023US122170

PATIENT
  Age: 32 Year
  Sex: Male

DRUGS (3)
  1. OXALIPLATIN [Suspect]
     Active Substance: OXALIPLATIN
     Indication: Oesophageal adenocarcinoma stage IV
     Dosage: 10 TO 12 CYCLES OF CHEMOTHERAPY , CYCLIC
     Route: 065
  2. FLUOROURACIL [Concomitant]
     Active Substance: FLUOROURACIL
     Indication: Oesophageal adenocarcinoma stage IV
     Dosage: 10 TO 12 CYCLES OF CHEMOTHERAPY , CYCLIC
     Route: 065
  3. NIVOLUMAB [Concomitant]
     Active Substance: NIVOLUMAB
     Indication: Oesophageal adenocarcinoma stage IV
     Dosage: 10 TO 12 CYCLES OF CHEMOTHERAPY , CYCLIC
     Route: 065

REACTIONS (2)
  - Venoocclusive liver disease [Not Recovered/Not Resolved]
  - Product use in unapproved indication [Unknown]
